FAERS Safety Report 12488750 (Version 1)
Quarter: 2016Q2

REPORT INFORMATION
  Report Type: Spontaneous
  Country: GB (occurrence: GB)
  Receive Date: 20160622
  Receipt Date: 20160622
  Transmission Date: 20160815
  Serious: Yes (Other)
  Sender: FDA-Public Use
  Company Number: GB-PFIZER INC-2016303358

PATIENT
  Age: 90 Year
  Sex: Male

DRUGS (9)
  1. SODIUM CHLORIDE. [Suspect]
     Active Substance: SODIUM CHLORIDE
     Indication: CATHETER MANAGEMENT
     Dosage: 10 ML, UNK
  2. WATER FOR INJECTION [Suspect]
     Active Substance: WATER
     Dosage: 20 ML, UNK
  3. WATER FOR INJECTION [Suspect]
     Active Substance: WATER
     Dosage: 20 ML, UNK
     Dates: start: 20160502
  4. TAZOCIN [Suspect]
     Active Substance: PIPERACILLIN SODIUM\TAZOBACTAM SODIUM
     Indication: ANTIBIOTIC THERAPY
     Dosage: UNK
     Route: 042
  5. SODIUM CHLORIDE. [Suspect]
     Active Substance: SODIUM CHLORIDE
     Dosage: 10 ML, UNK
     Dates: start: 20160502
  6. TAZOCIN [Suspect]
     Active Substance: PIPERACILLIN SODIUM\TAZOBACTAM SODIUM
     Dosage: 4.5 G, UNK
     Route: 042
     Dates: start: 20160502
  7. WATER FOR INJECTION [Suspect]
     Active Substance: WATER
     Dosage: 20 ML, UNK
     Dates: end: 20160502
  8. TAZOCIN [Suspect]
     Active Substance: PIPERACILLIN SODIUM\TAZOBACTAM SODIUM
     Dosage: 4.5 G, UNK
     Dates: end: 20160502
  9. SODIUM CHLORIDE. [Suspect]
     Active Substance: SODIUM CHLORIDE
     Dosage: 10 ML, UNK
     Dates: end: 20160502

REACTIONS (9)
  - Asthenia [Unknown]
  - Depressed mood [Unknown]
  - Dyskinesia [Unknown]
  - Pneumoconiosis [Unknown]
  - Dizziness [Unknown]
  - Lethargy [Unknown]
  - Malaise [Unknown]
  - Chest pain [Unknown]
  - Atrial fibrillation [Unknown]

NARRATIVE: CASE EVENT DATE: 20160502
